FAERS Safety Report 4424071-1 (Version None)
Quarter: 2004Q3

REPORT INFORMATION
  Report Type: 
  Country: None (occurrence: None)
  Receive Date: 20040806
  Receipt Date: 20040728
  Transmission Date: 20050211
  Serious: Yes (Hospitalization)
  Sender: FDA-Public Use
  Company Number: LTI2004A00164

PATIENT
  Age: 68 Year
  Sex: Male

DRUGS (4)
  1. ACTOS [Suspect]
     Indication: DIABETES MELLITUS NON-INSULIN-DEPENDENT
     Dosage: 15 MG (15 MG, 1 IN 1 D) ORAL
     Route: 048
     Dates: start: 20031201, end: 20040301
  2. SECTRAL [Concomitant]
  3. NIFEDIPINE [Concomitant]
  4. NOVONORM (REPAGLINIDE) [Concomitant]

REACTIONS (21)
  - ACUTE PULMONARY OEDEMA [None]
  - BLOOD CREATININE INCREASED [None]
  - BLOOD GLUCOSE INCREASED [None]
  - BLOOD UREA INCREASED [None]
  - BLOOD URIC ACID INCREASED [None]
  - CARDIAC MURMUR [None]
  - CONDITION AGGRAVATED [None]
  - CREPITATIONS [None]
  - DILATATION ATRIAL [None]
  - DYSPNOEA [None]
  - DYSPNOEA EXERTIONAL [None]
  - EPIGASTRIC DISCOMFORT [None]
  - GAMMA-GLUTAMYLTRANSFERASE INCREASED [None]
  - GLOMERULAR FILTRATION RATE DECREASED [None]
  - GLYCOSYLATED HAEMOGLOBIN INCREASED [None]
  - HYPERTENSION [None]
  - JUGULAR VEIN DISTENSION [None]
  - OEDEMA PERIPHERAL [None]
  - ORTHOPNOEA [None]
  - SUPRAVENTRICULAR EXTRASYSTOLES [None]
  - VENTRICULAR HYPERTROPHY [None]
